FAERS Safety Report 19166346 (Version 1)
Quarter: 2021Q2

REPORT INFORMATION
  Report Type: Spontaneous
  Country: US (occurrence: US)
  Receive Date: 20210420
  Receipt Date: 20210420
  Transmission Date: 20210717
  Serious: No
  Sender: FDA-Public Use
  Company Number: None

PATIENT
  Age: 20 Year
  Sex: Male
  Weight: 64.94 kg

DRUGS (4)
  1. DOCUSATE [Concomitant]
     Active Substance: DOCUSATE
  2. DIVALPROEX ER [Suspect]
     Active Substance: DIVALPROEX SODIUM
     Indication: SEIZURE PROPHYLAXIS
     Dates: start: 20201201
  3. FAMOTIDINE. [Concomitant]
     Active Substance: FAMOTIDINE
  4. CLOZAPINE. [Concomitant]
     Active Substance: CLOZAPINE

REACTIONS (2)
  - Taste disorder [None]
  - Platelet count decreased [None]

NARRATIVE: CASE EVENT DATE: 20201201
